FAERS Safety Report 8303040-5 (Version None)
Quarter: 2012Q2

REPORT INFORMATION
  Report Type: 
  Country: None (occurrence: None)
  Receive Date: 20120422
  Receipt Date: 20120413
  Transmission Date: 20120825
  Serious: Yes (Other)
  Sender: FDA-Public Use
  Company Number: JP-VERTEX PHARMACEUTICALS INC.-AE-2012-005503

PATIENT

DRUGS (2)
  1. TELAVIC (TELAPREVIR) [Suspect]
     Route: 048
  2. TELAVIC (TELAPREVIR) [Suspect]
     Route: 048

REACTIONS (1)
  - RENAL IMPAIRMENT [None]
